FAERS Safety Report 15923455 (Version 1)
Quarter: 2019Q1

REPORT INFORMATION
  Report Type: Report from Study
  Country: DE (occurrence: DE)
  Receive Date: 20190206
  Receipt Date: 20190206
  Transmission Date: 20190417
  Serious: Yes (Hospitalization)
  Sender: FDA-Public Use
  Company Number: DE-ACCORD-105787

PATIENT
  Age: 51 Year
  Sex: Male
  Weight: 77 kg

DRUGS (16)
  1. OXALIPLATIN. [Suspect]
     Active Substance: OXALIPLATIN
     Indication: PRODUCT USED FOR UNKNOWN INDICATION
     Dosage: DAILY DOSE: 85 MG MILLGRAM(S) EVERY 2 WEEKS
     Route: 042
     Dates: start: 20150820
  2. IRINOTECAN [Suspect]
     Active Substance: IRINOTECAN
     Indication: COLORECTAL CANCER METASTATIC
     Dosage: DAILY DOSE: 360 MG MILLGRAM(S) EVERY 2 WEEKS,170 MG,342MG DOSE TAKEN
     Route: 042
     Dates: start: 20150820
  3. GRANULOCYTE COLONY STIMULATING [Concomitant]
     Active Substance: GRANULOCYTE COLONY-STIMULATING FACTOR NOS
     Indication: NEUTROPENIA
     Dosage: 30 MIU.
     Route: 058
  4. FLUOROURACIL. [Suspect]
     Active Substance: FLUOROURACIL
     Indication: COLORECTAL CANCER METASTATIC
     Dosage: DAILY DOSE: 400 MG MILLGRAM(S) EVERY 2 WEEKS,2400 MG,760MG,800MG,2280MG DOSE TAKEN,
     Route: 040
     Dates: start: 20150820
  5. OXALIPLATIN. [Suspect]
     Active Substance: OXALIPLATIN
     Indication: COLORECTAL CANCER METASTATIC
     Dosage: DAILY DOSE: 170 MG MILLGRAM(S) EVERY 2 WEEKS,85 MG,161 MG DOSE TAKEN
     Route: 042
     Dates: start: 20150820
  6. AVASTIN [Suspect]
     Active Substance: BEVACIZUMAB
     Indication: COLORECTAL CANCER METASTATIC
     Dosage: DAILY DOSE: 5 MG/KG MILLIGRAM(S)/KILOGRAM EVERY 15 DAYS,THERAPY RESTARTED,375MG
     Route: 042
     Dates: start: 20150903, end: 20150903
  7. METOCLOPRAMIDE. [Concomitant]
     Active Substance: METOCLOPRAMIDE
     Indication: PAIN
     Route: 048
  8. FERRO SANOL [Concomitant]
     Active Substance: FERROUS GLYCINE SULFATE
     Indication: IRON DEFICIENCY ANAEMIA
     Route: 048
     Dates: start: 20151021, end: 20151031
  9. GRANISETRON/GRANISETRON HYDROCHLORIDE [Concomitant]
     Indication: VOMITING
     Dosage: FREQUENCY: CYCLICAL
     Route: 042
  10. ATROPINE. [Concomitant]
     Active Substance: ATROPINE
     Dosage: FREQUENCY: CYCLICAL
     Route: 058
  11. UNACID [Concomitant]
     Indication: URINARY TRACT INFECTION
     Dosage: 2-0-2
     Route: 048
  12. CIPROBAY [Concomitant]
     Active Substance: CIPROFLOXACIN
     Indication: URINARY TRACT INFECTION
     Dosage: ALSO TAKEN FROM 09-FEB-2016 TO 13-FEB-2016
     Route: 048
     Dates: start: 20160524, end: 20160529
  13. FOLINIC ACID [Suspect]
     Active Substance: LEUCOVORIN
     Indication: COLORECTAL CANCER METASTATIC
     Dosage: DAILY DOSE: 400 MG MILLGRAM(S) EVERY 2 WEEKS,380MG
     Route: 042
     Dates: start: 20150820, end: 20150820
  14. METAMIZOLE SODIUM [Concomitant]
     Active Substance: METAMIZOLE SODIUM
     Indication: PAIN
     Route: 048
  15. DEXAMETHASONE. [Concomitant]
     Active Substance: DEXAMETHASONE
     Indication: VOMITING
     Dosage: FREQUENCY: CYCLICAL
     Route: 042
  16. ONDANSETRON [Concomitant]
     Active Substance: ONDANSETRON
     Indication: VOMITING
     Route: 048

REACTIONS (1)
  - Tumour perforation [Recovered/Resolved]

NARRATIVE: CASE EVENT DATE: 20151006
